FAERS Safety Report 20734360 (Version 1)
Quarter: 2022Q2

REPORT INFORMATION
  Report Type: Spontaneous
  Country: US (occurrence: US)
  Receive Date: 20220421
  Receipt Date: 20220421
  Transmission Date: 20220720
  Serious: Yes (Other)
  Sender: FDA-Public Use
  Company Number: US-STRIDES ARCOLAB LIMITED-2022SP004178

PATIENT
  Age: 77 Year
  Sex: Male

DRUGS (12)
  1. PREDNISOLONE [Suspect]
     Active Substance: PREDNISOLONE
     Indication: Toxic epidermal necrolysis
     Dosage: 40 MILLIGRAM (LOW DOSE TAPER WITH MAXIMUM DOSE AT 40MG)
     Route: 048
  2. PREDNISOLONE [Suspect]
     Active Substance: PREDNISOLONE
     Dosage: 60 MILLIGRAM (MAXIMUM DOSE)
     Route: 048
  3. PREDNISOLONE [Suspect]
     Active Substance: PREDNISOLONE
     Dosage: 1 MG/KG/DAY
     Route: 048
  4. PREDNISOLONE [Suspect]
     Active Substance: PREDNISOLONE
     Dosage: 2 MG/KG/DAY
     Route: 048
  5. PREDNISOLONE [Suspect]
     Active Substance: PREDNISOLONE
     Dosage: UNK, PREDNISONE WERE TAPERED
     Route: 065
  6. METHYLPREDNISOLONE [Suspect]
     Active Substance: METHYLPREDNISOLONE
     Indication: Toxic epidermal necrolysis
     Dosage: 80 MILLIGRAM
     Route: 042
  7. PEMBROLIZUMAB [Concomitant]
     Active Substance: PEMBROLIZUMAB
     Indication: Oesophageal adenocarcinoma
     Dosage: UNK, CYCLICAL (TWO CYCLES), INFUSION
     Route: 050
  8. FLUOROURACIL [Concomitant]
     Active Substance: FLUOROURACIL
     Indication: Oesophageal adenocarcinoma
     Dosage: UNK, CYCLICAL (FOUR CYCLES),  INFUSION (PART OF FOLFOX REGIMEN)
     Route: 050
  9. OXALIPLATIN [Concomitant]
     Active Substance: OXALIPLATIN
     Indication: Oesophageal adenocarcinoma
     Dosage: UNK, CYCLICAL (4 CYCLES), INFUSION (PART OF FOLFOX REGIMEN)
     Route: 050
  10. LEUCOVORIN [Concomitant]
     Active Substance: LEUCOVORIN
     Indication: Chemotherapy side effect prophylaxis
     Dosage: UNK, CYCLICAL (4 CYCLES), INFUSION (PART OF FOLFOX REGIMEN)
     Route: 050
  11. TRASTUZUMAB [Concomitant]
     Active Substance: TRASTUZUMAB
     Indication: Oesophageal adenocarcinoma
     Dosage: UNK, CYCLICAL (FOUR CYCLES), INFUSION
     Route: 050
  12. DIPHENHYDRAMINE [Concomitant]
     Active Substance: DIPHENHYDRAMINE
     Indication: Toxic epidermal necrolysis
     Dosage: 25 MILLIGRAM
     Route: 042

REACTIONS (5)
  - Osteopenia [Unknown]
  - Spinal fracture [Unknown]
  - Compression fracture [Unknown]
  - Fall [Unknown]
  - Traumatic fracture [Unknown]
